FAERS Safety Report 9624718 (Version 2)
Quarter: 2013Q4

REPORT INFORMATION
  Report Type: Spontaneous
  Country: US (occurrence: None)
  Receive Date: 20131010
  Receipt Date: 20131023
  Transmission Date: 20140711
  Serious: Yes (Death)
  Sender: FDA-Public Use
  Company Number: 2013-US-001552

PATIENT
  Age: 52 Year
  Sex: Male

DRUGS (8)
  1. FAZACLO [Suspect]
     Indication: BIPOLAR DISORDER
     Route: 048
     Dates: start: 20071117, end: 20110112
  2. FAZACLO [Suspect]
     Indication: SCHIZOPHRENIA
     Route: 048
     Dates: start: 20071117, end: 20110112
  3. LITHIUM(LITHIUM CARBONATE) [Concomitant]
  4. HALOPERIDOL(HALOPERIDOL LACTATE) [Concomitant]
  5. ABLIFY (ARIPIPRAZOLE0 [Concomitant]
  6. PRAZOSIN HCL (PRAZOSIN HYDROCHLORIDE) [Concomitant]
  7. PAROXETINE HCL(PAROXETINE HYDROCHLORIDE) [Concomitant]
  8. GABAPENTIN (GABAPENTIN) [Concomitant]

REACTIONS (3)
  - Death [None]
  - Hypertension [None]
  - Cardiovascular disorder [None]
